FAERS Safety Report 6149188-5 (Version None)
Quarter: 2009Q2

REPORT INFORMATION
  Report Type: 
  Country: None (occurrence: None)
  Receive Date: 20090407
  Receipt Date: 20090325
  Transmission Date: 20091009
  Serious: Yes (Hospitalization)
  Sender: FDA-Public Use
  Company Number: FR-2009-0643

PATIENT
  Age: 61 Year
  Sex: Female

DRUGS (2)
  1. NAVELBINE [Suspect]
     Indication: BREAST CANCER
     Dosage: 25 MG/M2 ONCE PER MONTH IV
     Route: 042
     Dates: start: 20081208, end: 20090106
  2. XELODA [Suspect]
     Indication: BREAST CANCER
     Dosage: 1500 MG BID PO
     Route: 048
     Dates: start: 20081230, end: 20090113

REACTIONS (4)
  - ASCITES [None]
  - FEBRILE BONE MARROW APLASIA [None]
  - KLEBSIELLA INFECTION [None]
  - PERIPHERAL MOTOR NEUROPATHY [None]
